FAERS Safety Report 5973674-1 (Version None)
Quarter: 2008Q4

REPORT INFORMATION
  Report Type: 
  Country: None (occurrence: None)
  Receive Date: 20081201
  Receipt Date: 20081121
  Transmission Date: 20090506
  Serious: Yes (Hospitalization)
  Sender: FDA-Public Use
  Company Number: CA-WYE-G02637908

PATIENT
  Sex: Male

DRUGS (1)
  1. TEMSIROLIMUS [Suspect]
     Indication: METASTATIC RENAL CELL CARCINOMA
     Dosage: UNKNOWN
     Dates: end: 20081101

REACTIONS (5)
  - COMPUTERISED TOMOGRAM ABNORMAL [None]
  - COUGH [None]
  - DIABETES MELLITUS [None]
  - DYSPNOEA [None]
  - PNEUMONIA [None]
